FAERS Safety Report 9883572 (Version 2)
Quarter: 2014Q1

REPORT INFORMATION
  Report Type: Spontaneous
  Country: CA (occurrence: CA)
  Receive Date: 20140210
  Receipt Date: 20140213
  Transmission Date: 20141002
  Serious: Yes (Death, Hospitalization)
  Sender: FDA-Public Use
  Company Number: CA-AMGEN-CANSP2014008243

PATIENT
  Age: 77 Year
  Sex: Male
  Weight: 84.8 kg

DRUGS (13)
  1. ENBREL [Suspect]
     Indication: RHEUMATOID ARTHRITIS
     Dosage: 50 MG, QWK
     Route: 058
     Dates: start: 20090221
  2. METHOTREXATE [Suspect]
     Indication: RHEUMATOID ARTHRITIS
     Dosage: UNK
     Route: 065
     Dates: start: 2006, end: 2013
  3. CORTISONE [Suspect]
     Indication: PRODUCT USED FOR UNKNOWN INDICATION
     Dosage: UNK
     Route: 065
  4. FLOVENT [Concomitant]
     Dosage: 250 MCG/DOSE, 2 INHALATIONS TWO TIMES PER DAY
     Dates: start: 20130524
  5. EFUDEX [Concomitant]
     Dosage: 5 %, BID MORNING AND EVENING FOR 21 DAYS
     Route: 061
     Dates: start: 20130516
  6. APO-PREDNISONE [Concomitant]
     Dosage: 5 MG, 1/2 TABLET QD MORNING AT BREAKFAST (CORTISONE)
     Dates: start: 20130514
  7. JAMP FOLIC ACID [Concomitant]
     Dosage: 5 MG, QWK NEXT DAY FOLLOWING METHOREXATE DOSE
     Dates: start: 20130514
  8. JAMP VITAMIN D3 [Concomitant]
     Dosage: 10000 UNIT, 1 TABLET QWK
     Dates: start: 20130514
  9. MINT AMLODIPINE [Concomitant]
     Indication: SLEEP DISORDER
     Dosage: ONE TABLET ONCE A DAY
     Dates: start: 20130514
  10. APO ALPRAZ [Concomitant]
     Dosage: 0.5 MG, 1/2 TABLET TO 1 TABLET IF NEEDED
     Dates: start: 20130416
  11. APO NADOL [Concomitant]
     Dosage: 40 MG, 1/2 TO 1 TABLET PER DAY IF NEEDED
     Dates: start: 20130416
  12. RAN DOMPERIDONE [Concomitant]
     Dosage: 10 MUG, TID
     Dates: start: 20121205
  13. PANTOPRAZOLE [Concomitant]
     Dosage: 40 MG, 1 TABLET QD
     Dates: start: 20121205

REACTIONS (3)
  - Metastases to liver [Fatal]
  - General physical health deterioration [Unknown]
  - Osteoarthritis [Unknown]
